FAERS Safety Report 24993909 (Version 3)
Quarter: 2025Q1

REPORT INFORMATION
  Report Type: Report from Study
  Country: IN (occurrence: IN)
  Receive Date: 20250221
  Receipt Date: 20250320
  Transmission Date: 20250409
  Serious: Yes (Hospitalization)
  Sender: ROCHE
  Company Number: IN-ROCHE-10000209206

PATIENT
  Age: 39 Year
  Sex: Male
  Weight: 60 kg

DRUGS (2)
  1. HEMLIBRA [Suspect]
     Active Substance: EMICIZUMAB-KXWH
     Indication: Factor VIII deficiency
     Route: 058
  2. HEMLIBRA [Suspect]
     Active Substance: EMICIZUMAB-KXWH
     Route: 058

REACTIONS (4)
  - Procedural haemorrhage [Not Recovered/Not Resolved]
  - Haemorrhage [Unknown]
  - Abdominal operation [Unknown]
  - Internal haemorrhage [Unknown]
